FAERS Safety Report 4939117-1 (Version None)
Quarter: 2006Q1

REPORT INFORMATION
  Report Type: 
  Country: None (occurrence: None)
  Receive Date: 20060306
  Receipt Date: 20060301
  Transmission Date: 20060701
  Serious: Yes (Congenital Anomaly, Other)
  Sender: FDA-Public Use
  Company Number: 2004-12-0593

PATIENT
  Age: 4 Day
  Weight: 2.5 kg

DRUGS (2)
  1. REBETOL [Suspect]
     Dosage: 800 MG QD ORAL
     Route: 048
     Dates: start: 20040201, end: 20040601
  2. PEG-INTRON [Suspect]
     Dosage: 180 MCG QWK SUBCUTANEOUS
     Route: 058
     Dates: start: 20040201, end: 20040601

REACTIONS (16)
  - APNOEA [None]
  - BRONCHIOLITIS [None]
  - BRONCHOSPASM [None]
  - CAESAREAN SECTION [None]
  - CYANOSIS [None]
  - DRUG EXPOSURE DURING PREGNANCY [None]
  - GASTROOESOPHAGEAL REFLUX DISEASE [None]
  - HYDROCELE [None]
  - JAUNDICE NEONATAL [None]
  - NEONATAL DISORDER [None]
  - PLACENTAL DISORDER [None]
  - RESPIRATORY SYNCYTIAL VIRUS INFECTION [None]
  - TRANSMISSION OF DRUG VIA SEMEN [None]
  - UPPER RESPIRATORY TRACT INFECTION [None]
  - VOMITING NEONATAL [None]
  - VOMITING PROJECTILE [None]
